FAERS Safety Report 6139031-2 (Version None)
Quarter: 2009Q1

REPORT INFORMATION
  Report Type: 
  Country: None (occurrence: None)
  Receive Date: 20090324
  Receipt Date: 20090316
  Transmission Date: 20090719
  Serious: Yes (Hospitalization)
  Sender: FDA-Public Use
  Company Number: 430012M08USA

PATIENT
  Age: 61 Year
  Sex: Male
  Weight: 84 kg

DRUGS (4)
  1. NOVANTRONE [Suspect]
     Indication: ACUTE MYELOID LEUKAEMIA
     Dates: start: 20080723
  2. CEP-701 (ALL OTHER THERAPEUTIC PRODUCTS) [Suspect]
     Indication: ACUTE MYELOID LEUKAEMIA
     Dosage: 80 MG, 2 IN 1 DAYS, ORAL
     Route: 048
     Dates: start: 20080729, end: 20080826
  3. ETOPOSIDE [Suspect]
     Indication: ACUTE MYELOID LEUKAEMIA
     Dates: start: 20080723
  4. CYTARABINE [Suspect]
     Indication: ACUTE MYELOID LEUKAEMIA
     Dates: start: 20080723

REACTIONS (5)
  - EATING DISORDER [None]
  - FEBRILE NEUTROPENIA [None]
  - STOMATITIS [None]
  - TONGUE ULCERATION [None]
  - WHITE BLOOD CELL COUNT DECREASED [None]
